FAERS Safety Report 19597846 (Version 2)
Quarter: 2021Q3

REPORT INFORMATION
  Report Type: Report from Study
  Country: GB (occurrence: GB)
  Receive Date: 20210723
  Receipt Date: 20210730
  Transmission Date: 20211014
  Serious: Yes (Hospitalization, Other)
  Sender: FDA-Public Use
  Company Number: GB-ACCORD-219002

PATIENT
  Age: 74 Year
  Sex: Female

DRUGS (45)
  1. EXEMESTANE. [Suspect]
     Active Substance: EXEMESTANE
     Indication: BREAST CANCER METASTATIC
     Route: 048
     Dates: start: 20161122
  2. NAPROXEN. [Concomitant]
     Active Substance: NAPROXEN
     Route: 048
     Dates: start: 20160902
  3. DENOSUMAB [Concomitant]
     Active Substance: DENOSUMAB
     Indication: PROPHYLAXIS
     Dosage: EVERY 3?4 WEEKS FOR 9 DOSES THEN 3?MONTH
     Route: 058
     Dates: start: 20191001
  4. DEXAMETHASONE. [Concomitant]
     Active Substance: DEXAMETHASONE
     Route: 048
     Dates: start: 20190517, end: 20190524
  5. LANSOPRAZOLE. [Concomitant]
     Active Substance: LANSOPRAZOLE
     Route: 048
     Dates: start: 20181106
  6. HYALURONIDASE/HYALURONIDASE SODIUM [Suspect]
     Active Substance: HYALURONIDASE
     Indication: PRODUCT USED FOR UNKNOWN INDICATION
     Dosage: 600 MG, 3 WEEK INTERVAL
     Route: 058
     Dates: start: 20161013, end: 20180130
  7. PHOSPHATE SANDOZ EFFERVESCENT [Concomitant]
     Indication: BLOOD PHOSPHORUS DECREASED
     Dosage: 50 UNK
     Route: 042
     Dates: start: 20181030, end: 20181101
  8. FLUCLOXACILLIN [Concomitant]
     Active Substance: FLUCLOXACILLIN
     Indication: ARTHRALGIA
     Route: 048
     Dates: start: 20191104, end: 20191106
  9. LEVOMEPROMAZINE [Concomitant]
     Active Substance: LEVOMEPROMAZINE
     Route: 048
     Dates: start: 20181022, end: 20181030
  10. PHOSPHATE SANDOZ EFFERVESCENT [Concomitant]
     Indication: BLOOD PHOSPHORUS DECREASED
     Route: 048
     Dates: start: 20181102, end: 20181105
  11. MORPHINE [Concomitant]
     Active Substance: MORPHINE
     Indication: BACK PAIN
     Route: 048
     Dates: start: 20181102
  12. TRASTUZUMAB. [Suspect]
     Active Substance: TRASTUZUMAB
     Indication: BREAST CANCER METASTATIC
     Route: 058
     Dates: start: 20161013, end: 20180130
  13. DEXAMETHASONE. [Concomitant]
     Active Substance: DEXAMETHASONE
     Route: 048
     Dates: start: 20190604
  14. OMEPRAZOLE. [Concomitant]
     Active Substance: OMEPRAZOLE
     Indication: PROPHYLAXIS
     Route: 048
     Dates: start: 20160902
  15. DOCUSATE [Concomitant]
     Active Substance: DOCUSATE
     Indication: CONSTIPATION
     Route: 048
     Dates: start: 20181102
  16. BUDESONIDE. [Concomitant]
     Active Substance: BUDESONIDE
     Indication: VAGINAL HAEMORRHAGE
     Route: 048
     Dates: start: 201803, end: 20180330
  17. PHOSPHORIC ACID/PHOSPHORIC ACID SODIUM [Concomitant]
     Indication: BLOOD PHOSPHORUS DECREASED
     Route: 042
     Dates: start: 20181030, end: 20181101
  18. CAPECITABINE. [Suspect]
     Active Substance: CAPECITABINE
     Indication: BREAST CANCER METASTATIC
     Route: 048
     Dates: start: 20180227, end: 20180731
  19. NERATINIB [Suspect]
     Active Substance: NERATINIB
     Indication: BREAST CANCER METASTATIC
     Route: 048
     Dates: start: 20180226, end: 20180227
  20. GABAPENTIN. [Concomitant]
     Active Substance: GABAPENTIN
     Route: 048
     Dates: start: 20160913
  21. HALOPERIDOL. [Concomitant]
     Active Substance: HALOPERIDOL
     Route: 048
     Dates: start: 20181030, end: 20181108
  22. LOPERAMIDE [Concomitant]
     Active Substance: LOPERAMIDE
     Indication: VAGINAL HAEMORRHAGE
     Route: 048
     Dates: start: 201803, end: 20190330
  23. PACLITAXEL/PACLITAXEL LIPOSOME [Suspect]
     Active Substance: PACLITAXEL
     Indication: PRODUCT USED FOR UNKNOWN INDICATION
     Dosage: 120 MG, UNKNOWN
     Route: 042
     Dates: start: 20181108, end: 20190228
  24. PACLITAXEL/PACLITAXEL LIPOSOME [Suspect]
     Active Substance: PACLITAXEL
     Indication: BREAST CANCER METASTATIC
     Route: 042
     Dates: start: 20180921, end: 20181025
  25. MACROGOL/MACROGOL STEARATE [Concomitant]
     Active Substance: POLYETHYLENE GLYCOLS
     Dosage: 1 SACHET,1 DF,0.5
     Route: 048
     Dates: start: 20160913
  26. CEFTAZIDIME/CEFTAZIDIME PENTAHYDRATE [Concomitant]
     Active Substance: CEFTAZIDIME
     Indication: VOMITING
  27. ZOLEDRONIC ACID [Concomitant]
     Active Substance: ZOLEDRONIC ACID
     Indication: METASTASES TO BONE
     Route: 042
     Dates: start: 20160920, end: 20190831
  28. DEXAMETHASONE. [Concomitant]
     Active Substance: DEXAMETHASONE
     Indication: SPINAL PAIN
     Route: 048
     Dates: start: 20181102, end: 20181108
  29. PARACETAMOL [Concomitant]
     Active Substance: ACETAMINOPHEN
     Route: 048
     Dates: start: 20160913
  30. CALCICHEW D3 FORTE [Concomitant]
     Active Substance: CALCIUM\CHOLECALCIFEROL
     Route: 048
     Dates: start: 20160917
  31. LIDOCAINE. [Concomitant]
     Active Substance: LIDOCAINE
     Indication: BACK PAIN
     Dosage: OD FOR?UP TO 12?HRS?THEN OFF?12HRS
     Route: 061
     Dates: start: 20181108
  32. METOCLOPRAMIDE. [Concomitant]
     Active Substance: METOCLOPRAMIDE
     Indication: NAUSEA
     Route: 048
     Dates: start: 20190124
  33. GLYCEROL [Concomitant]
     Active Substance: GLYCERIN
     Indication: CONSTIPATION
     Dates: start: 20181029, end: 20181030
  34. CEFTAZIDIME/CEFTAZIDIME PENTAHYDRATE [Concomitant]
     Active Substance: CEFTAZIDIME
     Indication: DIARRHOEA
     Dates: start: 20181017, end: 20181022
  35. ANASTROZOLE. [Suspect]
     Active Substance: ANASTROZOLE
     Indication: BREAST CANCER METASTATIC
     Route: 048
     Dates: start: 201906, end: 201912
  36. TRASTUZUMAB. [Suspect]
     Active Substance: TRASTUZUMAB
     Indication: HER2 POSITIVE BREAST CANCER
     Route: 058
     Dates: start: 20180718, end: 20200602
  37. LEVOTHYROXINE. [Concomitant]
     Active Substance: LEVOTHYROXINE
     Route: 048
     Dates: start: 20030924
  38. TRASTUZUMAB/EMTANSINE [Suspect]
     Active Substance: ADO-TRASTUZUMAB EMTANSINE
     Indication: PRODUCT USED FOR UNKNOWN INDICATION
     Dosage: 220 MG, TIW
     Route: 042
     Dates: start: 20201001
  39. PHOSPHATE SANDOZ EFFERVESCENT [Concomitant]
     Indication: BLOOD PHOSPHORUS DECREASED
     Dosage: 2 DF,0.33
     Route: 048
     Dates: start: 20181017, end: 20181025
  40. HYALURONIDASE/HYALURONIDASE SODIUM [Suspect]
     Active Substance: HYALURONIDASE
     Indication: HER2 POSITIVE BREAST CANCER
     Dosage: 600 MG, 3 WEEK INTERVAL
     Route: 058
     Dates: start: 20180718
  41. TRASTUZUMAB/EMTANSINE [Suspect]
     Active Substance: ADO-TRASTUZUMAB EMTANSINE
     Indication: PRODUCT USED FOR UNKNOWN INDICATION
     Route: 042
     Dates: start: 20200625, end: 20200827
  42. MORPHINE [Concomitant]
     Active Substance: MORPHINE
     Route: 048
     Dates: start: 20181102
  43. DOMPERIDONE [Concomitant]
     Active Substance: DOMPERIDONE
     Indication: NAUSEA
     Route: 048
     Dates: start: 20181108
  44. MORPHINE [Concomitant]
     Active Substance: MORPHINE
     Indication: BACK PAIN
     Route: 048
     Dates: start: 20160913
  45. ANASTROZOLE. [Suspect]
     Active Substance: ANASTROZOLE
     Indication: BREAST CANCER METASTATIC
     Dosage: 1 MG,QD
     Route: 048
     Dates: start: 201906, end: 201912

REACTIONS (3)
  - Arthralgia [Recovering/Resolving]
  - Vaginal haemorrhage [Recovered/Resolved]
  - Thrombocytopenia [Not Recovered/Not Resolved]

NARRATIVE: CASE EVENT DATE: 20191101
